FAERS Safety Report 15196915 (Version 1)
Quarter: 2018Q3

REPORT INFORMATION
  Report Type: Spontaneous
  Country: SE (occurrence: SE)
  Receive Date: 20180725
  Receipt Date: 20180725
  Transmission Date: 20181010
  Serious: Yes (Other)
  Sender: FDA-Public Use
  Company Number: SE-PFIZER INC-2018294578

PATIENT
  Age: 8 Year
  Sex: Male

DRUGS (6)
  1. MINIRIN [Suspect]
     Active Substance: DESMOPRESSIN ACETATE
     Indication: ENURESIS
     Dosage: 240 UG FOR THE NIGHT
     Route: 048
     Dates: start: 20170605, end: 20170929
  2. MELATONIN [Concomitant]
     Active Substance: MELATONIN
  3. SERETIDE [Concomitant]
     Active Substance: FLUTICASONE PROPIONATE\SALMETEROL XINAFOATE
     Dosage: SUSPENSION SPRAY FOR INHALATION
  4. AIROMIR /00139502/ [Concomitant]
     Active Substance: ALBUTEROL SULFATE
  5. ZOLOFT [Suspect]
     Active Substance: SERTRALINE HYDROCHLORIDE
     Dosage: UNK
     Dates: start: 20161103
  6. LORATADINE. [Concomitant]
     Active Substance: LORATADINE

REACTIONS (2)
  - Oedema [Recovered/Resolved]
  - Generalised tonic-clonic seizure [Recovered/Resolved]

NARRATIVE: CASE EVENT DATE: 201709
